FAERS Safety Report 19022214 (Version 3)
Quarter: 2021Q2

REPORT INFORMATION
  Report Type: Spontaneous
  Country: US (occurrence: US)
  Receive Date: 20210317
  Receipt Date: 20210517
  Transmission Date: 20210717
  Serious: Yes (Hospitalization)
  Sender: FDA-Public Use
  Company Number: US-TAKEDA-2021TUS017139

PATIENT
  Age: 31 Year
  Sex: Male
  Weight: 150 kg

DRUGS (2)
  1. ICLUSIG [Suspect]
     Active Substance: PONATINIB
     Indication: NEOPLASM MALIGNANT
     Dosage: 30 MILLIGRAM, QD
     Route: 065
     Dates: end: 20210426
  2. ICLUSIG [Suspect]
     Active Substance: PONATINIB
     Indication: ACUTE LYMPHOCYTIC LEUKAEMIA RECURRENT
     Dosage: 15 MILLIGRAM, QD
     Route: 065

REACTIONS (2)
  - Product dose omission issue [Unknown]
  - Hospitalisation [Unknown]

NARRATIVE: CASE EVENT DATE: 202102
